FAERS Safety Report 4535056-9 (Version None)
Quarter: 2004Q4

REPORT INFORMATION
  Report Type: 
  Country: None (occurrence: None)
  Receive Date: 20041222
  Receipt Date: 20041213
  Transmission Date: 20050328
  Serious: Yes (Other)
  Sender: FDA-Public Use
  Company Number: JP-ROCHE-389020

PATIENT
  Age: 60 Year
  Sex: Female
  Weight: 43 kg

DRUGS (5)
  1. PANALDINE [Suspect]
     Indication: MYOCARDIAL INFARCTION
     Route: 048
     Dates: start: 20040317, end: 20040402
  2. GASTER (JAPAN) [Suspect]
     Route: 048
     Dates: start: 20040317, end: 20040403
  3. ASPIRIN [Concomitant]
     Route: 048
  4. MAGNESIUM OXIDE [Concomitant]
     Route: 048
  5. SELBEX [Concomitant]
     Route: 048

REACTIONS (5)
  - DIZZINESS [None]
  - ERYTHEMA [None]
  - HEADACHE [None]
  - PANCYTOPENIA [None]
  - PYREXIA [None]
